FAERS Safety Report 5669618-2 (Version None)
Quarter: 2008Q1

REPORT INFORMATION
  Report Type: 
  Country: None (occurrence: None)
  Receive Date: 20080317
  Receipt Date: 20080307
  Transmission Date: 20080703
  Serious: Yes (Hospitalization, Other)
  Sender: FDA-Public Use
  Company Number: PHMT2007CA02143

PATIENT
  Age: 44 Year
  Sex: Male

DRUGS (5)
  1. CLOZARIL [Suspect]
     Indication: PSYCHOTIC DISORDER
     Dosage: MAXIMUM 75 MG
     Route: 048
     Dates: start: 20070921, end: 20071008
  2. PRAZOSIN HCL [Concomitant]
     Dosage: 25 MG, QHS
     Dates: start: 20070917
  3. ATIVAN [Concomitant]
     Dosage: 1-2 MG,  Q4H
     Route: 048
     Dates: start: 20070917
  4. ATIVAN [Concomitant]
     Dosage: 1-2 MG,  Q4H
     Route: 048
     Dates: start: 20071007
  5. ATIVAN [Concomitant]
     Dosage: 1-2 MG, Q4H
     Route: 048
     Dates: start: 20071008

REACTIONS (7)
  - BUNDLE BRANCH BLOCK LEFT [None]
  - BUNDLE BRANCH BLOCK RIGHT [None]
  - CHEST PAIN [None]
  - CYCLIC NEUTROPENIA [None]
  - ORTHOSTATIC HYPOTENSION [None]
  - PYREXIA [None]
  - TACHYCARDIA [None]
